FAERS Safety Report 6526289-0 (Version None)
Quarter: 2009Q4

REPORT INFORMATION
  Report Type: 
  Country: None (occurrence: None)
  Receive Date: 20091222
  Receipt Date: 20091204
  Transmission Date: 20100525
  Serious: Yes (Hospitalization, Other)
  Sender: FDA-Public Use
  Company Number: AUR-APL-2009-00804

PATIENT
  Age: 42 Year
  Sex: Female

DRUGS (6)
  1. METFORMIN HYDROCHLORIDE [Suspect]
     Dosage: 500MG
  2. DICLOFENAC SODIUM [Suspect]
     Dosage: 75MG
  3. CO-PROXAMOL (PARACETAMOL / DEXTROPROPOXYPHENE HCL) [Suspect]
  4. NORTRIPTYLINE HCL [Suspect]
     Dosage: 10MG
  5. RIZATRIPTAN BENZOATE [Suspect]
     Dosage: 10MG
  6. TEMAZEPAM [Suspect]
     Dosage: 10MG

REACTIONS (10)
  - DIARRHOEA [None]
  - DUODENAL ULCER [None]
  - GASTRITIS [None]
  - GASTROINTESTINAL DISORDER [None]
  - HAEMATEMESIS [None]
  - HEPATIC STEATOSIS [None]
  - INFLAMMATORY BOWEL DISEASE [None]
  - OESOPHAGITIS ULCERATIVE [None]
  - VOMITING [None]
  - WEIGHT DECREASED [None]
